FAERS Safety Report 10072183 (Version 1)
Quarter: 2014Q2

REPORT INFORMATION
  Report Type: Spontaneous
  Country: US (occurrence: None)
  Receive Date: 20140410
  Receipt Date: 20140410
  Transmission Date: 20141212
  Serious: Yes (Life-Threatening)
  Sender: FDA-Public Use
  Company Number: None

PATIENT
  Age: 75 Year
  Sex: Male
  Weight: 89 kg

DRUGS (6)
  1. FIDAXOMICIN [Suspect]
     Indication: CLOSTRIDIUM DIFFICILE COLITIS
     Dosage: 200?BID?ORAL
     Route: 048
     Dates: start: 20140408, end: 20140408
  2. AMIODARONE [Concomitant]
  3. GABAPENTIN [Concomitant]
  4. LOPERAMIDE [Concomitant]
  5. PROTONIX [Concomitant]
  6. ENOXAPARIN [Concomitant]

REACTIONS (1)
  - Electrocardiogram abnormal [None]
